FAERS Safety Report 6857956-7 (Version None)
Quarter: 2010Q3

REPORT INFORMATION
  Report Type: 
  Country: None (occurrence: None)
  Receive Date: 20100714
  Receipt Date: 20100525
  Transmission Date: 20110219
  Serious: Yes (Other)
  Sender: FDA-Public Use
  Company Number: 011514

PATIENT
  Sex: Female
  Weight: 2 kg

DRUGS (2)
  1. PROSTAGLANDIN E1 (PROSTAGLANDIN E1) [Suspect]
     Indication: HYPOPLASTIC LEFT HEART SYNDROME
     Dosage: GRADUALLY INCREASED TO 8.0 NG/KG/MIN
  2. NITROGEN, LIQUID [Concomitant]

REACTIONS (2)
  - CARDIAC FAILURE [None]
  - COLLATERAL CIRCULATION [None]
